FAERS Safety Report 6907060-4 (Version None)
Quarter: 2010Q3

REPORT INFORMATION
  Report Type: 
  Country: None (occurrence: None)
  Receive Date: 20100802
  Receipt Date: 20100716
  Transmission Date: 20110219
  Serious: Yes (Hospitalization)
  Sender: FDA-Public Use
  Company Number: A-US2010-38179

PATIENT
  Age: 47 Year
  Sex: Female

DRUGS (5)
  1. TRACLEER [Suspect]
     Indication: PRODUCT USED FOR UNKNOWN INDICATION
     Dosage: 125 MG, BID, ORAL
     Route: 048
     Dates: start: 20080701
  2. TREPROSTINIL (TREPROSTINIL) [Concomitant]
  3. NAFCILLIN (NAFCILLIN) [Concomitant]
  4. VORICONAZOLE [Concomitant]
  5. AMPICILLIN (AMPICILLIN TRIHYDRATE) [Concomitant]

REACTIONS (5)
  - BLOOD BILIRUBIN INCREASED [None]
  - CONDITION AGGRAVATED [None]
  - DEVICE RELATED SEPSIS [None]
  - PNEUMONIA [None]
  - STAPHYLOCOCCAL SEPSIS [None]
